FAERS Safety Report 8374948-X (Version None)
Quarter: 2012Q2

REPORT INFORMATION
  Report Type: 
  Country: None (occurrence: None)
  Receive Date: 20120521
  Receipt Date: 20120504
  Transmission Date: 20120825
  Serious: No
  Sender: FDA-Public Use
  Company Number: US-ASTRAZENECA-2012SE29187

PATIENT
  Age: 46 Year
  Sex: Male
  Weight: 68.9 kg

DRUGS (7)
  1. XANAX [Concomitant]
  2. IBUPROFEN (ADVIL) [Concomitant]
     Dosage: DAILY
  3. VENTOLIN [Concomitant]
  4. MUCOMIX [Concomitant]
     Dosage: BID WITH WATER
  5. SYMBICORT [Suspect]
     Dosage: 160/4.5 MCG BID
     Route: 055
  6. ALBUTEROL [Suspect]
     Route: 065
  7. KLONOPIN [Concomitant]

REACTIONS (5)
  - MALAISE [None]
  - INSOMNIA [None]
  - CHEST DISCOMFORT [None]
  - DYSPNOEA [None]
  - ASTHMA [None]
